FAERS Safety Report 4525340-7 (Version None)
Quarter: 2004Q4

REPORT INFORMATION
  Report Type: 
  Country: None (occurrence: None)
  Receive Date: 20041117
  Receipt Date: 20040930
  Transmission Date: 20050328
  Serious: Yes (Hospitalization, Other)
  Sender: FDA-Public Use
  Company Number: C-04-0053

PATIENT
  Age: 4 Year
  Sex: Female
  Weight: 7.2576 kg

DRUGS (3)
  1. METOCLOPRAMIDE [Suspect]
     Indication: GASTROOESOPHAGEAL REFLUX DISEASE
     Dosage: 1 ML ORALLY BEFORE MEALS AND AT BEDTIME
     Route: 048
     Dates: start: 20040928
  2. METOCLOPRAMIDE [Suspect]
     Indication: GASTROOESOPHAGEAL REFLUX DISEASE
     Dosage: 1 ML ORALLY BEFORE MEALS AND AT BEDTIME
     Route: 048
     Dates: start: 20040929
  3. PREVACID [Concomitant]

REACTIONS (8)
  - DYSTONIA [None]
  - EYE ROLLING [None]
  - HYPERTONIA [None]
  - MUSCLE SPASMS [None]
  - MUSCULOSKELETAL STIFFNESS [None]
  - NERVOUS SYSTEM DISORDER [None]
  - NEUROPATHY PERIPHERAL [None]
  - OCULOGYRATION [None]
